FAERS Safety Report 10312212 (Version 2)
Quarter: 2014Q3

REPORT INFORMATION
  Report Type: Spontaneous
  Country: US (occurrence: US)
  Receive Date: 20140718
  Receipt Date: 20140801
  Transmission Date: 20150326
  Serious: Yes (Hospitalization, Other)
  Sender: FDA-Public Use
  Company Number: 2014SP004038

PATIENT
  Age: 54 Year
  Sex: Female
  Weight: 124.1 kg

DRUGS (17)
  1. CYTARABINE. [Suspect]
     Active Substance: CYTARABINE
     Indication: ACUTE MYELOID LEUKAEMIA
     Route: 042
     Dates: start: 20140618, end: 20140622
  2. METOPROLOL SUCCINATE. [Concomitant]
     Active Substance: METOPROLOL SUCCINATE
     Indication: ARRHYTHMIA
     Dates: start: 20140423
  3. DILTIAZEM [Concomitant]
     Active Substance: DILTIAZEM
     Indication: ARRHYTHMIA
     Dates: start: 20140510
  4. DILTIAZEM [Concomitant]
     Active Substance: DILTIAZEM
     Indication: CHEST PAIN
     Dates: start: 20140510
  5. PREDNISOLONE. [Concomitant]
     Active Substance: PREDNISOLONE
     Indication: PROPHYLAXIS
     Dates: start: 20140508, end: 20140625
  6. MAGNESIUM OXIDE. [Concomitant]
     Active Substance: MAGNESIUM OXIDE
     Indication: HYPOMAGNESAEMIA
     Dates: start: 20140423
  7. DAUNORUBICIN [Suspect]
     Active Substance: DAUNORUBICIN
     Route: 040
  8. ACICLOVIR [Concomitant]
     Active Substance: ACYCLOVIR
     Indication: PROPHYLAXIS
     Dates: start: 20140317
  9. DILTIAZEM [Concomitant]
     Active Substance: DILTIAZEM
     Indication: PALPITATIONS
     Dates: start: 20140510
  10. AUGMENTIN [Concomitant]
     Active Substance: AMOXICILLIN\CLAVULANATE POTASSIUM
     Indication: PROPHYLAXIS
     Dates: start: 20140519
  11. DAUNORUBICIN [Suspect]
     Active Substance: DAUNORUBICIN
     Indication: ACUTE MYELOID LEUKAEMIA
     Route: 040
  12. METOPROLOL SUCCINATE. [Concomitant]
     Active Substance: METOPROLOL SUCCINATE
     Indication: PALPITATIONS
     Dates: start: 20140423
  13. COLECALCIFEROL [Concomitant]
     Active Substance: CHOLECALCIFEROL
     Indication: VITAMIN D DEFICIENCY
     Dates: start: 20140520, end: 20140626
  14. COLECALCIFEROL [Concomitant]
     Active Substance: CHOLECALCIFEROL
     Indication: VITAMIN SUPPLEMENTATION
     Dates: start: 20140520, end: 20140626
  15. CYTARABINE. [Suspect]
     Active Substance: CYTARABINE
     Route: 042
     Dates: start: 20140618, end: 20140622
  16. ALTEPLASE [Concomitant]
     Active Substance: ALTEPLASE
     Indication: PROPHYLAXIS
     Dates: start: 20140411
  17. POTASSIUM CHLORIDE. [Concomitant]
     Active Substance: POTASSIUM CHLORIDE
     Indication: HYPOKALAEMIA
     Dates: start: 20140405

REACTIONS (10)
  - Flushing [Unknown]
  - Perirectal abscess [Recovering/Resolving]
  - Abdominal distension [Unknown]
  - Febrile neutropenia [Recovered/Resolved]
  - Chills [Unknown]
  - Nausea [Unknown]
  - Fatigue [Unknown]
  - Feeling cold [Unknown]
  - Syncope [Unknown]
  - Dizziness [Unknown]

NARRATIVE: CASE EVENT DATE: 20140707
